FAERS Safety Report 9445853 (Version 1)
Quarter: 2013Q3

REPORT INFORMATION
  Report Type: Report from Study
  Country: US (occurrence: US)
  Receive Date: 20130807
  Receipt Date: 20130807
  Transmission Date: 20140515
  Serious: Yes (Other)
  Sender: FDA-Public Use
  Company Number: US-US-EMD SERONO, INC.-7227470

PATIENT
  Sex: Male
  Weight: 91 kg

DRUGS (2)
  1. EGRIFTA [Suspect]
     Indication: LIPODYSTROPHY ACQUIRED
     Route: 058
     Dates: start: 20120927
  2. EGRIFTA [Suspect]
     Route: 058
     Dates: start: 201304

REACTIONS (5)
  - Hernia [Not Recovered/Not Resolved]
  - Anxiety [Not Recovered/Not Resolved]
  - Neuropathy peripheral [Not Recovered/Not Resolved]
  - Palpitations [Not Recovered/Not Resolved]
  - Rash [Not Recovered/Not Resolved]
